FAERS Safety Report 9975060 (Version 1)
Quarter: 2014Q1

REPORT INFORMATION
  Report Type: Report from Study
  Country: US (occurrence: US)
  Receive Date: 20140306
  Receipt Date: 20140306
  Transmission Date: 20141002
  Serious: No
  Sender: FDA-Public Use
  Company Number: US-ABBVIE-13P-163-1160076-00

PATIENT
  Age: 57 Year
  Sex: Female

DRUGS (13)
  1. HUMIRA [Suspect]
     Indication: CROHN^S DISEASE
     Dates: start: 20130920, end: 20130920
  2. HUMIRA [Suspect]
     Dates: start: 20131004, end: 20131004
  3. HUMIRA [Suspect]
     Dates: start: 20131018
  4. SINGULAIR [Concomitant]
     Indication: HYPERSENSITIVITY
  5. GABAPENTIN [Concomitant]
     Indication: THROMBOSIS
  6. GABAPENTIN [Concomitant]
     Indication: NERVOUS SYSTEM DISORDER
  7. ZANTAC [Concomitant]
     Indication: HYPERSENSITIVITY
  8. MEGA RED FISH OIL [Concomitant]
     Indication: PRODUCT USED FOR UNKNOWN INDICATION
  9. PROBIOTICS [Concomitant]
     Indication: GASTROINTESTINAL DISORDER
     Dosage: ONCE DAILY
  10. CENTRUM SILVER [Concomitant]
     Indication: PRODUCT USED FOR UNKNOWN INDICATION
     Dosage: ONE DAILY
  11. VITAMIN D [Concomitant]
     Indication: PRODUCT USED FOR UNKNOWN INDICATION
  12. B-12 [Concomitant]
     Indication: PRODUCT USED FOR UNKNOWN INDICATION
     Dosage: ONCE MONTHLY
  13. CALCIUM [Concomitant]
     Indication: PRODUCT USED FOR UNKNOWN INDICATION

REACTIONS (3)
  - Injection site erythema [Not Recovered/Not Resolved]
  - Injection site pruritus [Not Recovered/Not Resolved]
  - Injection site pain [Not Recovered/Not Resolved]
